FAERS Safety Report 8711525 (Version 2)
Quarter: 2016Q1

REPORT INFORMATION
  Report Type: Spontaneous
  Country: US (occurrence: US)
  Receive Date: 20120807
  Receipt Date: 20160129
  Transmission Date: 20160526
  Serious: Yes (Hospitalization, Other)
  Sender: FDA-Public Use
  Company Number: US-GLAXOSMITHKLINE-A0899159A

PATIENT
  Sex: Male

DRUGS (1)
  1. AVANDIA [Suspect]
     Active Substance: ROSIGLITAZONE MALEATE
     Indication: DIABETES MELLITUS
     Dosage: 4 MG, QD
     Route: 048
     Dates: start: 200405, end: 201007

REACTIONS (7)
  - Bradycardia [Recovered/Resolved]
  - Atrial fibrillation [Recovered/Resolved]
  - Cardiac pacemaker insertion [Unknown]
  - Atrial flutter [Recovered/Resolved]
  - Sinus node dysfunction [Recovered/Resolved]
  - Heart rate irregular [Unknown]
  - Cardiac failure congestive [Recovered/Resolved]
